FAERS Safety Report 9315501 (Version 1)
Quarter: 2013Q2

REPORT INFORMATION
  Report Type: Spontaneous
  Country: US (occurrence: US)
  Receive Date: 20130529
  Receipt Date: 20130529
  Transmission Date: 20140414
  Serious: Yes (Death)
  Sender: FDA-Public Use
  Company Number: US-ACTELION-A-US2013-83455

PATIENT
  Age: 36 Year
  Sex: Female

DRUGS (4)
  1. TRACLEER [Suspect]
     Indication: PULMONARY ARTERIAL HYPERTENSION
     Route: 048
  2. DIGOXIN [Concomitant]
  3. ASPIRIN [Concomitant]
  4. COUMADIN [Concomitant]

REACTIONS (1)
  - Cardio-respiratory arrest [Fatal]
